FAERS Safety Report 19472060 (Version 1)
Quarter: 2021Q2

REPORT INFORMATION
  Report Type: Spontaneous
  Country: JP (occurrence: JP)
  Receive Date: 20210629
  Receipt Date: 20210629
  Transmission Date: 20210717
  Serious: Yes (Other)
  Sender: FDA-Public Use
  Company Number: JP-TEVA-2021-JP-1927255

PATIENT
  Age: 52 Year
  Sex: Female
  Weight: 66.4 kg

DRUGS (5)
  1. CAPECITABINE. [Suspect]
     Active Substance: CAPECITABINE
     Indication: ADENOCARCINOMA OF COLON
     Dosage: 3000 MG X 14 DAYS, EVERY 3 WEEKS.
     Route: 065
  2. CAPECITABINE. [Suspect]
     Active Substance: CAPECITABINE
     Indication: ADENOCARCINOMA OF COLON
     Dosage: DOSE REDUCED TO 2400 MG X 14 DAYS, EVERY 3 WEEKS
     Route: 065
  3. METFORMIN [Concomitant]
     Active Substance: METFORMIN HYDROCHLORIDE
     Indication: TYPE 2 DIABETES MELLITUS
     Route: 065
  4. OXALIPLATIN. [Suspect]
     Active Substance: OXALIPLATIN
     Indication: ADENOCARCINOMA OF COLON
     Dosage: 205 MG X 1 DAY, EVERY 3 WEEKS
     Route: 065
  5. INSULIN [Concomitant]
     Active Substance: INSULIN NOS
     Indication: TYPE 2 DIABETES MELLITUS
     Dosage: INTENSIVE INSULIN THERAPY
     Route: 065

REACTIONS (3)
  - Myelosuppression [Unknown]
  - Hyperinsulinaemia [Recovering/Resolving]
  - Dyslipidaemia [Recovered/Resolved]
